FAERS Safety Report 14939011 (Version 3)
Quarter: 2019Q4

REPORT INFORMATION
  Report Type: Spontaneous
  Country: US (occurrence: US)
  Receive Date: 20180525
  Receipt Date: 20191204
  Transmission Date: 20200122
  Serious: No
  Sender: FDA-Public Use
  Company Number: US-BIOGEN-2018BI00581610

PATIENT
  Sex: Female

DRUGS (2)
  1. TYSABRI [Suspect]
     Active Substance: NATALIZUMAB
     Indication: MULTIPLE SCLEROSIS
     Route: 050
     Dates: start: 20171101
  2. TYSABRI [Suspect]
     Active Substance: NATALIZUMAB
     Dosage: INFUSION OVER 1 HOUR
     Route: 042
     Dates: start: 20190911

REACTIONS (8)
  - Ear pain [Recovered/Resolved]
  - Pharyngitis streptococcal [Recovered/Resolved]
  - Tonsillar inflammation [Unknown]
  - Viral infection [Recovered/Resolved]
  - Upper-airway cough syndrome [Recovered/Resolved]
  - Oropharyngeal pain [Recovered/Resolved]
  - Adenoiditis [Unknown]
  - Glossitis [Unknown]
